FAERS Safety Report 4586484-7 (Version None)
Quarter: 2005Q1

REPORT INFORMATION
  Report Type: 
  Country: None (occurrence: None)
  Receive Date: 20050218
  Receipt Date: 20050121
  Transmission Date: 20050727
  Serious: Yes (Hospitalization)
  Sender: FDA-Public Use
  Company Number: CZ-ROCHE-393011

PATIENT
  Age: 29 Year
  Sex: Male
  Weight: 56 kg

DRUGS (3)
  1. RIBAVIRIN [Suspect]
     Route: 048
     Dates: start: 20040902
  2. PEG-INTERFERON ALFA 2A (RO 25-8310) [Suspect]
     Route: 058
     Dates: start: 20040902
  3. KETOPROFENUM [Concomitant]
     Dates: start: 20040903

REACTIONS (5)
  - FLUID INTAKE REDUCED [None]
  - HYPOTENSION [None]
  - HYPOVOLAEMIA [None]
  - OLIGURIA [None]
  - VOMITING [None]
